FAERS Safety Report 16730177 (Version 1)
Quarter: 2019Q3

REPORT INFORMATION
  Report Type: Spontaneous
  Country: US (occurrence: US)
  Receive Date: 20190706
  Receipt Date: 20190706
  Transmission Date: 20191005
  Serious: No
  Sender: FDA-Public Use
  Company Number: None

PATIENT
  Age: 66 Year
  Sex: Female

DRUGS (1)
  1. PROLIA [Suspect]
     Active Substance: DENOSUMAB

REACTIONS (4)
  - Decreased appetite [None]
  - Pancreatic carcinoma [None]
  - Weight decreased [None]
  - Paraesthesia [None]

NARRATIVE: CASE EVENT DATE: 20190706
